FAERS Safety Report 4998695-7 (Version None)
Quarter: 2006Q2

REPORT INFORMATION
  Report Type: 
  Country: None (occurrence: None)
  Receive Date: 20060508
  Receipt Date: 20060424
  Transmission Date: 20061013
  Serious: Yes (Life-Threatening, Hospitalization)
  Sender: FDA-Public Use
  Company Number: 2006RR-02105

PATIENT
  Age: 21 Year
  Sex: Female
  Weight: 50 kg

DRUGS (2)
  1. ACETAMINOPHEN [Suspect]
     Dosage: 60 G, ORAL
     Route: 048
     Dates: start: 20050621
  2. CODEINE PHOSPHATE (CODEINE PHOSPHATE) [Suspect]
     Dosage: 360 MG, ORAL
     Route: 048
     Dates: start: 20050621

REACTIONS (5)
  - HYPERAMYLASAEMIA [None]
  - LEUKOCYTOSIS [None]
  - MULTIPLE DRUG OVERDOSE INTENTIONAL [None]
  - NAUSEA [None]
  - RESPIRATORY RATE DECREASED [None]
